FAERS Safety Report 25063214 (Version 1)
Quarter: 2025Q1

REPORT INFORMATION
  Report Type: Spontaneous
  Country: US (occurrence: None)
  Receive Date: 20250310
  Receipt Date: 20250310
  Transmission Date: 20250408
  Serious: No
  Sender: FDA-CTU
  Company Number: None

PATIENT
  Age: 41 Year
  Sex: Male

DRUGS (1)
  1. ISENTRESS [Suspect]
     Active Substance: RALTEGRAVIR POTASSIUM
     Indication: Prophylaxis
     Dosage: 400MG TWICE DAILY ORAL
     Route: 048
     Dates: start: 202501, end: 20250125

REACTIONS (3)
  - Dyspnoea [None]
  - Therapy cessation [None]
  - Refusal of treatment by patient [None]

NARRATIVE: CASE EVENT DATE: 20250122
